FAERS Safety Report 7529568-3 (Version None)
Quarter: 2011Q2

REPORT INFORMATION
  Report Type: 
  Country: None (occurrence: None)
  Receive Date: 20110520
  Receipt Date: 20110121
  Transmission Date: 20111010
  Serious: No
  Sender: FDA-Public Use
  Company Number: 026109

PATIENT
  Sex: Female

DRUGS (1)
  1. LACOSAMIDE [Suspect]
     Indication: PETIT MAL EPILEPSY
     Dosage: (DISCONTINUED IN THE 6TH WEEK)

REACTIONS (1)
  - RASH MACULAR [None]
